FAERS Safety Report 7775910 (Version 2)
Quarter: 2013Q2

REPORT INFORMATION
  Report Type: Spontaneous
  Country: US (occurrence: US)
  Receive Date: 20110127
  Receipt Date: 20130612
  Transmission Date: 20140414
  Serious: Yes (Hospitalization, Other)
  Sender: FDA-Public Use
  Company Number: US-JNJFOC-20101007541

PATIENT
  Age: 82 Year
  Sex: Female
  Weight: 73.03 kg

DRUGS (2)
  1. LEVAQUIN [Suspect]
     Indication: MASTITIS
     Route: 048
     Dates: start: 20081101, end: 20081107
  2. LEVAQUIN [Suspect]
     Indication: PRODUCT USED FOR UNKNOWN INDICATION
     Route: 048
     Dates: start: 20081023

REACTIONS (4)
  - Atrial fibrillation [Unknown]
  - Ligament rupture [Unknown]
  - Tendon rupture [Unknown]
  - Osteoarthritis [Not Recovered/Not Resolved]
